FAERS Safety Report 8383521-9 (Version None)
Quarter: 2012Q1

REPORT INFORMATION
  Report Type: 
  Country: None (occurrence: None)
  Receive Date: 20120323
  Receipt Date: 20110321
  Transmission Date: 20120608
  Serious: Yes (Hospitalization, Disabling)
  Sender: FDA-Public Use
  Company Number: 163-21880-11032544

PATIENT
  Age: 50 Year
  Sex: Male

DRUGS (1)
  1. REVLIMID [Suspect]
     Indication: MULTIPLE MYELOMA
     Dosage: 10 MG, DAILY FOR 14 DAYS ON THEN 14 DAYS OFF, PO
     Route: 048
     Dates: start: 20101101

REACTIONS (2)
  - PLATELET COUNT DECREASED [None]
  - GASTRIC HAEMORRHAGE [None]
